FAERS Safety Report 20548961 (Version 1)
Quarter: 2022Q1

REPORT INFORMATION
  Report Type: Spontaneous
  Country: JP (occurrence: None)
  Receive Date: 20220303
  Receipt Date: 20220303
  Transmission Date: 20220424
  Serious: Yes (Other)
  Sender: FDA-Public Use
  Company Number: 2022A058011

PATIENT
  Age: 92 Year
  Sex: Female

DRUGS (3)
  1. TAGRISSO [Suspect]
     Active Substance: OSIMERTINIB
     Indication: Non-small cell lung cancer
     Route: 048
  2. TAGRISSO [Suspect]
     Active Substance: OSIMERTINIB
     Indication: Non-small cell lung cancer
     Route: 048
  3. XARELTO [Concomitant]
     Active Substance: RIVAROXABAN
     Route: 065

REACTIONS (1)
  - Deep vein thrombosis [Recovered/Resolved]
